FAERS Safety Report 20192097 (Version 1)
Quarter: 2021Q4

REPORT INFORMATION
  Report Type: Spontaneous
  Country: US (occurrence: US)
  Receive Date: 20211216
  Receipt Date: 20211216
  Transmission Date: 20220303
  Serious: No
  Sender: FDA-Public Use
  Company Number: US-GLENMARK PHARMACEUTICALS-2021GMK068473

PATIENT

DRUGS (2)
  1. MUPIROCIN [Suspect]
     Active Substance: MUPIROCIN
     Indication: Mucosal inflammation
     Dosage: UNK, TID
     Route: 045
     Dates: start: 20211014, end: 20211014
  2. FLUOROURACIL SODIUM [Concomitant]
     Active Substance: FLUOROURACIL SODIUM
     Indication: Skin exfoliation
     Dosage: UNK, OD
     Route: 045
     Dates: start: 20211014

REACTIONS (2)
  - Product use issue [Unknown]
  - Rhinalgia [Unknown]

NARRATIVE: CASE EVENT DATE: 20211014
